FAERS Safety Report 9820922 (Version 1)
Quarter: 2014Q1

REPORT INFORMATION
  Report Type: Spontaneous
  Country: US (occurrence: None)
  Receive Date: 20140114
  Receipt Date: 20140114
  Transmission Date: 20141002
  Serious: Yes (Disabling)
  Sender: FDA-Public Use
  Company Number: None

PATIENT
  Age: 32 Year
  Sex: Male
  Weight: 113.4 kg

DRUGS (1)
  1. LIPITOR 40MG [Suspect]
     Indication: HYPERLIPIDAEMIA
     Dosage: TAKEN BY MOUTH
     Dates: start: 20111001, end: 20131218

REACTIONS (3)
  - Amnesia [None]
  - Activities of daily living impaired [None]
  - Impaired work ability [None]
